FAERS Safety Report 8425276-5 (Version None)
Quarter: 2012Q2

REPORT INFORMATION
  Report Type: 
  Country: None (occurrence: None)
  Receive Date: 20120611
  Receipt Date: 20120601
  Transmission Date: 20120825
  Serious: Yes (Other)
  Sender: FDA-Public Use
  Company Number: US-JNJFOC-20120601386

PATIENT
  Sex: Female
  Weight: 95.26 kg

DRUGS (17)
  1. NEURONTIN [Suspect]
     Indication: PAIN
     Route: 065
     Dates: start: 20070101
  2. LIPITOR [Suspect]
     Indication: BLOOD CHOLESTEROL INCREASED
     Route: 048
     Dates: start: 20050101
  3. TRAMADOL HCL [Concomitant]
     Indication: PAIN
     Route: 065
  4. ATIVAN [Concomitant]
     Indication: PANIC ATTACK
     Route: 048
  5. WELLBUTRIN [Concomitant]
     Indication: BIPOLAR DISORDER
     Route: 065
  6. ATIVAN [Concomitant]
     Indication: ANXIETY
     Route: 048
  7. NORVASC [Suspect]
     Indication: HYPERTENSION
     Route: 048
     Dates: start: 19950101
  8. GEODON [Concomitant]
     Indication: DRUG THERAPY
     Route: 065
  9. TOPAMAX [Suspect]
     Indication: MIGRAINE
     Route: 048
     Dates: start: 20060101
  10. WELLBUTRIN [Concomitant]
     Indication: DEPRESSION
     Route: 065
  11. TOPAMAX [Suspect]
     Indication: CONVULSION
     Route: 048
     Dates: start: 20060101
  12. CELEBREX [Suspect]
     Indication: ARTHRITIS
     Route: 048
     Dates: start: 20080101
  13. PROTONIX [Concomitant]
     Indication: GASTROOESOPHAGEAL REFLUX DISEASE
     Route: 065
  14. COGENTIN [Concomitant]
     Indication: PANIC ATTACK
     Route: 065
  15. REQUIP [Concomitant]
     Indication: MUSCLE SPASMS
     Route: 048
  16. LITHIUM [Concomitant]
     Indication: BIPOLAR DISORDER
     Route: 065
  17. GEODON [Concomitant]
     Indication: BIPOLAR DISORDER
     Route: 065

REACTIONS (3)
  - DEPRESSED LEVEL OF CONSCIOUSNESS [None]
  - SUICIDE ATTEMPT [None]
  - TREMOR [None]
